FAERS Safety Report 25753495 (Version 2)
Quarter: 2025Q3

REPORT INFORMATION
  Report Type: Spontaneous
  Country: US (occurrence: US)
  Receive Date: 20250903
  Receipt Date: 20250911
  Transmission Date: 20251020
  Serious: Yes (Hospitalization, Other)
  Sender: BRISTOL-MYERS SQUIBB COMPANY
  Company Number: US-BRISTOL-MYERS SQUIBB COMPANY-2025-121361

PATIENT
  Age: 62 Year
  Sex: Male
  Weight: 83.1 kg

DRUGS (10)
  1. ELIQUIS [Suspect]
     Active Substance: APIXABAN
     Indication: Prophylaxis
     Dosage: DAILY
  2. ELIQUIS [Suspect]
     Active Substance: APIXABAN
  3. CETUXIMAB [Suspect]
     Active Substance: CETUXIMAB
     Indication: Squamous cell carcinoma of head and neck
     Dosage: WEEKLY
     Dates: start: 202506, end: 20250825
  4. ASPIRIN [Concomitant]
     Active Substance: ASPIRIN
     Indication: Product used for unknown indication
     Dosage: DAILY
  5. COLACE [Concomitant]
     Active Substance: DOCUSATE SODIUM
     Indication: Product used for unknown indication
  6. MINOCYCLINE [Concomitant]
     Active Substance: MINOCYCLINE HYDROCHLORIDE
     Indication: Product used for unknown indication
  7. MORPHINE [Concomitant]
     Active Substance: MORPHINE
     Indication: Product used for unknown indication
  8. ROXICODONE [Concomitant]
     Active Substance: OXYCODONE HYDROCHLORIDE
     Indication: Product used for unknown indication
  9. TYLENOL [Concomitant]
     Active Substance: ACETAMINOPHEN
     Indication: Product used for unknown indication
  10. HEPARIN [Concomitant]
     Active Substance: HEPARIN SODIUM
     Indication: Product used for unknown indication
     Dates: start: 20250825, end: 20250827

REACTIONS (3)
  - Cardiac ventricular thrombosis [Unknown]
  - Malignant neoplasm progression [Unknown]
  - Pericardial effusion [Unknown]

NARRATIVE: CASE EVENT DATE: 20250825
